FAERS Safety Report 11926403 (Version 1)
Quarter: 2016Q1

REPORT INFORMATION
  Report Type: Spontaneous
  Country: US (occurrence: None)
  Receive Date: 20160115
  Receipt Date: 20160115
  Transmission Date: 20160526
  Serious: Yes (Death)
  Sender: FDA-Public Use
  Company Number: None

PATIENT
  Age: 56 Year
  Sex: Female

DRUGS (1)
  1. GRANIX [Suspect]
     Active Substance: TBO-FILGRASTIM
     Indication: BREAST CANCER
     Dosage: 400MCG?QDX3DAYS 3 WKS/CYCL ?SQ

REACTIONS (1)
  - Death [None]

NARRATIVE: CASE EVENT DATE: 20160110
